FAERS Safety Report 5227591-5 (Version None)
Quarter: 2007Q1

REPORT INFORMATION
  Report Type: 
  Country: None (occurrence: None)
  Receive Date: 20070202
  Receipt Date: 20070125
  Transmission Date: 20070707
  Serious: Yes (Disabling, Other)
  Sender: FDA-Public Use
  Company Number: US-ELI_LILLY_AND_COMPANY-US200701005989

PATIENT
  Sex: Male

DRUGS (3)
  1. ZYPREXA [Suspect]
     Dosage: 10 MG, 2/D
     Dates: start: 19990101
  2. PREDNISONE [Concomitant]
  3. ABILIFY [Concomitant]
     Dosage: 10 MG, 2/D

REACTIONS (2)
  - AMPUTATION [None]
  - DIABETES MELLITUS [None]
